FAERS Safety Report 16449468 (Version 2)
Quarter: 2020Q1

REPORT INFORMATION
  Report Type: Spontaneous
  Country: US (occurrence: US)
  Receive Date: 20190619
  Receipt Date: 20200213
  Transmission Date: 20200409
  Serious: No
  Sender: FDA-Public Use
  Company Number: US-TEVA-2019-US-1063060

PATIENT
  Sex: Male

DRUGS (1)
  1. MEXILETINE CAPSULES [Suspect]
     Active Substance: MEXILETINE
     Indication: ARRHYTHMIA
     Dates: start: 20190606

REACTIONS (1)
  - Tremor [Unknown]

NARRATIVE: CASE EVENT DATE: 20190606
